FAERS Safety Report 9698884 (Version 1)
Quarter: 2013Q4

REPORT INFORMATION
  Report Type: Spontaneous
  Country: ZA (occurrence: ZA)
  Receive Date: 20131120
  Receipt Date: 20131120
  Transmission Date: 20140711
  Serious: Yes (Other)
  Sender: FDA-Public Use
  Company Number: ZA-PFIZER INC-2013330846

PATIENT
  Sex: Female

DRUGS (1)
  1. ASPAVOR [Suspect]
     Dosage: UNK

REACTIONS (1)
  - Amnesia [Unknown]
